FAERS Safety Report 24589653 (Version 1)
Quarter: 2024Q4

REPORT INFORMATION
  Report Type: Spontaneous
  Country: CN (occurrence: CN)
  Receive Date: 20241107
  Receipt Date: 20241107
  Transmission Date: 20250114
  Serious: Yes (Hospitalization)
  Sender: ELI LILLY AND COMPANY
  Company Number: CN-Merck Healthcare KGaA-2024057637

PATIENT
  Age: 42 Year
  Sex: Male
  Weight: 69 kg

DRUGS (7)
  1. ERBITUX [Suspect]
     Active Substance: CETUXIMAB
     Indication: Tongue neoplasm
     Dosage: 800 MG, UNKNOWN
     Route: 041
     Dates: start: 20241008, end: 20241008
  2. DOCETAXEL [Suspect]
     Active Substance: DOCETAXEL
     Indication: Tongue neoplasm
     Dosage: 110 MG, DAILY
     Route: 041
     Dates: start: 20241008, end: 20241008
  3. NEDAPLATIN [Suspect]
     Active Substance: NEDAPLATIN
     Indication: Medication dilution
     Dosage: 40 MG, DAILY
     Route: 041
     Dates: start: 20241008, end: 20241010
  4. GIMERACIL\OTERACIL\TEGAFUR [Suspect]
     Active Substance: GIMERACIL\OTERACIL POTASSIUM\TEGAFUR
     Indication: Tongue neoplasm
     Dosage: 40 MG, BID
     Route: 048
     Dates: start: 20241008, end: 20241013
  5. SODIUM CHLORIDE [Concomitant]
     Active Substance: SODIUM CHLORIDE
     Indication: Medication dilution
     Dosage: 400 ML, DAILY
     Route: 041
     Dates: start: 20241008, end: 20241008
  6. SODIUM CHLORIDE [Concomitant]
     Active Substance: SODIUM CHLORIDE
     Dosage: 250 ML, DAILY
     Route: 041
     Dates: start: 20241008, end: 20241008
  7. SODIUM CHLORIDE [Concomitant]
     Active Substance: SODIUM CHLORIDE
     Dosage: 500 ML, DAILY
     Route: 041
     Dates: start: 20241008, end: 20241010

REACTIONS (2)
  - White blood cell count decreased [Recovered/Resolved]
  - Neutrophil count decreased [Recovered/Resolved]

NARRATIVE: CASE EVENT DATE: 20241015
